FAERS Safety Report 4336514-2 (Version None)
Quarter: 2004Q2

REPORT INFORMATION
  Report Type: 
  Country: None (occurrence: None)
  Receive Date: 20040407
  Receipt Date: 20040318
  Transmission Date: 20050107
  Serious: Yes (Other)
  Sender: FDA-Public Use
  Company Number: USA040362453

PATIENT
  Age: 60 Year
  Sex: Female
  Weight: 66 kg

DRUGS (5)
  1. HUMULIN U [Suspect]
     Indication: DIABETES MELLITUS
     Dates: start: 19930101, end: 19980101
  2. HUMALOG [Suspect]
     Indication: DIABETES MELLITUS
     Dates: start: 19980101
  3. HUMULIN R [Suspect]
     Indication: DIABETES MELLITUS
     Dates: start: 19910101, end: 19980101
  4. GLUCOPHAGE [Concomitant]
  5. INSULIN GLARGINE [Concomitant]

REACTIONS (9)
  - ASTIGMATISM [None]
  - CATARACT [None]
  - EYE DISORDER [None]
  - INTRAOCULAR PRESSURE DECREASED [None]
  - PHARMACEUTICAL PRODUCT COMPLAINT [None]
  - POST PROCEDURAL COMPLICATION [None]
  - RETINAL VEIN OCCLUSION [None]
  - SCAR [None]
  - VISUAL ACUITY REDUCED [None]
